FAERS Safety Report 6146796-2 (Version None)
Quarter: 2009Q2

REPORT INFORMATION
  Report Type: 
  Country: None (occurrence: None)
  Receive Date: 20090407
  Receipt Date: 20090326
  Transmission Date: 20091009
  Serious: Yes (Other)
  Sender: FDA-Public Use
  Company Number: US-SANOFI-SYNTHELABO-A03200801896

PATIENT
  Sex: Female

DRUGS (2)
  1. AMBIEN [Suspect]
     Indication: INSOMNIA
     Dosage: 1 WHEN NEEDED
     Route: 048
     Dates: start: 20080117, end: 20080318
  2. VITAMINS [Concomitant]
     Indication: DRUG USE FOR UNKNOWN INDICATION
     Dosage: UNK
     Route: 065

REACTIONS (5)
  - AGGRESSION [None]
  - AMNESIA [None]
  - ROAD TRAFFIC ACCIDENT [None]
  - SLEEP-RELATED EATING DISORDER [None]
  - SOMNAMBULISM [None]
